FAERS Safety Report 7992829-8 (Version None)
Quarter: 2011Q4

REPORT INFORMATION
  Report Type: 
  Country: None (occurrence: None)
  Receive Date: 20111219
  Receipt Date: 20110715
  Transmission Date: 20120403
  Serious: Yes (Hospitalization)
  Sender: FDA-Public Use
  Company Number: US-ASTRAZENECA-2011SE42422

PATIENT
  Age: 82 Year
  Sex: Female

DRUGS (5)
  1. BYSTOLIC [Concomitant]
  2. OMEPRAZOLE [Concomitant]
  3. CRESTOR [Suspect]
     Indication: HYPERCHOLESTEROLAEMIA
     Route: 048
     Dates: start: 20100701
  4. CRESTOR [Suspect]
     Route: 048
  5. FISH OIL [Concomitant]

REACTIONS (1)
  - PANCREATITIS [None]
